FAERS Safety Report 9203990 (Version 2)
Quarter: 2013Q2

REPORT INFORMATION
  Report Type: Spontaneous
  Country: US (occurrence: US)
  Receive Date: 20130402
  Receipt Date: 20130508
  Transmission Date: 20140414
  Serious: Yes (Other)
  Sender: FDA-Public Use
  Company Number: PHHY2013US029904

PATIENT
  Age: 76 Year
  Sex: Female
  Weight: 68.27 kg

DRUGS (2)
  1. GENTEAL GEL [Suspect]
     Indication: DRY EYE
     Dosage: UNK UKN, UNK
     Dates: start: 201209
  2. RESTASIS [Concomitant]
     Indication: DRY EYE
     Dosage: UNK UKN, UNK

REACTIONS (1)
  - Eye infection [Recovered/Resolved]
